FAERS Safety Report 5121676-X (Version None)
Quarter: 2006Q4

REPORT INFORMATION
  Report Type: 
  Country: None (occurrence: None)
  Receive Date: 20061006
  Receipt Date: 20060221
  Transmission Date: 20070319
  Serious: Yes (Hospitalization, Congenital Anomaly)
  Sender: FDA-Public Use
  Company Number: US-GLAXOSMITHKLINE-A0594995A

PATIENT
  Sex: Male

DRUGS (1)
  1. PAXIL CR [Suspect]
     Indication: MATERNAL CONDITION AFFECTING FOETUS
     Dosage: 12.5MG PER DAY

REACTIONS (18)
  - CAESAREAN SECTION [None]
  - CATATONIA [None]
  - CEREBROVASCULAR ACCIDENT [None]
  - CONVULSION [None]
  - CYANOSIS [None]
  - DRUG EXPOSURE DURING PREGNANCY [None]
  - EATING DISORDER [None]
  - FACIAL PALSY [None]
  - FEEDING DISORDER NEONATAL [None]
  - HEART DISEASE CONGENITAL [None]
  - NEURODEVELOPMENTAL DISORDER [None]
  - POSTOPERATIVE THROMBOSIS [None]
  - PREGNANCY [None]
  - PSYCHOMOTOR SKILLS IMPAIRED [None]
  - RESPIRATORY DISORDER [None]
  - SCREAMING [None]
  - SKIN DISCOLOURATION [None]
  - THROMBOSIS [None]
